FAERS Safety Report 5815141-1 (Version None)
Quarter: 2008Q3

REPORT INFORMATION
  Report Type: 
  Country: None (occurrence: None)
  Receive Date: 20080718
  Receipt Date: 20080708
  Transmission Date: 20090109
  Serious: Yes (Hospitalization, Other)
  Sender: FDA-Public Use
  Company Number: US-ABBOTT-08P-163-0461876-00

PATIENT
  Sex: Male
  Weight: 102.15 kg

DRUGS (10)
  1. HYDROCODONE BITARTRATE [Suspect]
     Indication: DRUG USE FOR UNKNOWN INDICATION
     Route: 048
     Dates: end: 20030708
  2. FENTANYL CITRATE [Suspect]
     Indication: ARTHRALGIA
     Route: 002
     Dates: end: 20021122
  3. FENTANYL CITRATE [Suspect]
     Route: 002
     Dates: start: 20021123, end: 20030101
  4. FENTANYL CITRATE [Suspect]
     Dosage: USING 3 TO 9 LOZENGES DAILY
     Route: 002
     Dates: start: 20030101, end: 20030708
  5. FENTANYL CITRATE [Suspect]
     Route: 002
     Dates: start: 20060209, end: 20060312
  6. FENTANYL CITRATE [Suspect]
     Route: 002
     Dates: start: 20060313
  7. NORGESIC [Suspect]
     Indication: DRUG USE FOR UNKNOWN INDICATION
     Route: 062
     Dates: end: 20030708
  8. ZOLPIDEM TARTRATE [Concomitant]
     Indication: DRUG USE FOR UNKNOWN INDICATION
  9. LORAZEPAM [Concomitant]
     Indication: DRUG USE FOR UNKNOWN INDICATION
  10. VENLAFAXINE HCL [Concomitant]
     Indication: DRUG USE FOR UNKNOWN INDICATION

REACTIONS (8)
  - COGNITIVE DISORDER [None]
  - COMPLEX REGIONAL PAIN SYNDROME [None]
  - DEPRESSION [None]
  - DRUG DEPENDENCE [None]
  - NEUROPATHY PERIPHERAL [None]
  - OVERDOSE [None]
  - TOOTH DISORDER [None]
  - TOOTH LOSS [None]
